FAERS Safety Report 20164855 (Version 1)
Quarter: 2021Q4

REPORT INFORMATION
  Report Type: Spontaneous
  Country: US (occurrence: None)
  Receive Date: 20211208
  Receipt Date: 20211208
  Transmission Date: 20220303
  Serious: No
  Sender: FDA-Public Use
  Company Number: None

PATIENT
  Age: 68 Year
  Sex: Male
  Weight: 142 kg

DRUGS (1)
  1. APIXABAN [Suspect]
     Active Substance: APIXABAN
     Dosage: FREQUENCY : TWICE A DAY;?
     Route: 048
     Dates: start: 20210714, end: 20210831

REACTIONS (5)
  - Headache [None]
  - Transient ischaemic attack [None]
  - Dyspnoea exertional [None]
  - Ataxia [None]
  - Therapy cessation [None]

NARRATIVE: CASE EVENT DATE: 20210828
